FAERS Safety Report 9343144 (Version 2)
Quarter: 2013Q2

REPORT INFORMATION
  Report Type: Spontaneous
  Country: BE (occurrence: BE)
  Receive Date: 20130611
  Receipt Date: 20130625
  Transmission Date: 20140414
  Serious: Yes (Life-Threatening, Hospitalization)
  Sender: FDA-Public Use
  Company Number: BE-PFIZER INC-2013170824

PATIENT
  Age: 56 Year
  Sex: Male
  Weight: 108.5 kg

DRUGS (6)
  1. SALAZOPYRINE [Suspect]
     Indication: CROHN^S DISEASE
     Dosage: 500 MG, 3X/DAY
     Route: 048
     Dates: start: 20130414, end: 20130503
  2. SALAZOPYRINE [Suspect]
     Indication: ANKYLOSING SPONDYLITIS
  3. REMICADE [Suspect]
     Dosage: UNK
     Dates: start: 20120222, end: 20120927
  4. OMEPRAZOLE [Concomitant]
     Dosage: 20 MG, 1X/DAY
     Route: 048
     Dates: start: 2012
  5. EMCONCOR [Concomitant]
     Dosage: 5 MG, 1X/DAY
     Route: 048
  6. PANTOMED [Concomitant]

REACTIONS (3)
  - Anaphylactic shock [Recovered/Resolved]
  - Cardiac arrest [Recovered/Resolved]
  - Systemic mastocytosis [Not Recovered/Not Resolved]
